FAERS Safety Report 10176201 (Version 1)
Quarter: 2014Q2

REPORT INFORMATION
  Report Type: Spontaneous
  Country: GB (occurrence: GB)
  Receive Date: 20140516
  Receipt Date: 20140516
  Transmission Date: 20141212
  Serious: Yes (Disabling)
  Sender: FDA-Public Use
  Company Number: GB-009507513-1405GBR006315

PATIENT
  Age: 54 Year
  Sex: Female

DRUGS (8)
  1. ALENDRONATE SODIUM [Suspect]
     Indication: PROPHYLAXIS
     Dosage: INDICATION: LIKELY OSTEOPOROSIS PROPHYLAXIS AS MENOPAUSE AGED 30 WITHOUT HRT
     Route: 048
     Dates: start: 2008, end: 2014
  2. ALLOPURINOL [Concomitant]
  3. ACETAMINOPHEN (+) CODEINE PHOSPHATE [Concomitant]
  4. HYDROCORTISONE [Concomitant]
  5. LANSOPRAZOLE [Concomitant]
  6. LEVOTHYROXINE SODIUM [Concomitant]
  7. METFORMIN [Concomitant]
  8. SIMVASTATIN [Concomitant]

REACTIONS (3)
  - Femur fracture [Recovering/Resolving]
  - Weight bearing difficulty [Unknown]
  - Pain in extremity [Unknown]
